FAERS Safety Report 9171492 (Version 1)
Quarter: 2013Q1

REPORT INFORMATION
  Report Type: Spontaneous
  Country: US (occurrence: None)
  Receive Date: 20130205
  Receipt Date: 20130205
  Transmission Date: 20140127
  Serious: Yes (Other)
  Sender: FDA-Public Use
  Company Number: US-145368

PATIENT
  Age: 34 Year
  Sex: Female

DRUGS (1)
  1. HUMAN RHO(D) IMMUNE GLOBULIN [Suspect]
     Dosage: SUBCUTANEOUS
     Route: 058

REACTIONS (3)
  - Fibrous histiocytoma [None]
  - Pruritus [None]
  - Pain [None]
